FAERS Safety Report 15020283 (Version 1)
Quarter: 2018Q2

REPORT INFORMATION
  Report Type: Spontaneous
  Country: DE (occurrence: DE)
  Receive Date: 20180618
  Receipt Date: 20180618
  Transmission Date: 20180711
  Serious: Yes (Hospitalization, Other)
  Sender: FDA-Public Use
  Company Number: DE-AUROBINDO-AUR-APL-2018-031340

PATIENT
  Sex: Male
  Weight: 80 kg

DRUGS (17)
  1. PANTOPRAZOLE [Concomitant]
     Active Substance: PANTOPRAZOLE
     Indication: GASTRITIS EROSIVE
     Dosage: 20 MG, QD
     Route: 048
     Dates: start: 20161122
  2. PREDNISOLONE. [Concomitant]
     Active Substance: PREDNISOLONE
     Dosage: 10 MILLIGRAM, ONCE A DAY
     Route: 065
  3. ZANIPRESS [Concomitant]
     Active Substance: ENALAPRIL MALEATE\LERCANIDIPINE HYDROCHLORIDE
     Indication: HYPERTENSION
     Dosage: 20/20 MG, 1DF
     Route: 048
     Dates: start: 20161213
  4. PREDNISOLONE. [Concomitant]
     Active Substance: PREDNISOLONE
     Indication: PSORIATIC ARTHROPATHY
     Dosage: 12.5 TO 5 MG ()
     Route: 048
     Dates: start: 201611
  5. COSENTYX [Suspect]
     Active Substance: SECUKINUMAB
     Indication: PSORIATIC ARTHROPATHY
     Dosage: 150 MG, PER APPLICATION
     Route: 058
     Dates: start: 20161115
  6. COSENTYX [Suspect]
     Active Substance: SECUKINUMAB
     Dosage: 150 MG, PER APPLICATION
     Route: 065
     Dates: start: 20161122
  7. COSENTYX [Suspect]
     Active Substance: SECUKINUMAB
     Dosage: 150 MG, PER APPLICATION
     Route: 065
     Dates: start: 20161129
  8. PREDNISOLONE. [Concomitant]
     Active Substance: PREDNISOLONE
     Dosage: 7.5 MILLIGRAM
     Route: 065
  9. SALICYLVASELIN [Concomitant]
     Indication: PSORIATIC ARTHROPATHY
     Dosage: BID
     Route: 061
     Dates: start: 2016
  10. PREDNITOP                          /00949801/ [Concomitant]
     Indication: PSORIATIC ARTHROPATHY
     Dosage: UNK, BID (2)
     Route: 061
     Dates: start: 2016
  11. COSENTYX [Suspect]
     Active Substance: SECUKINUMAB
     Dosage: 150 MG, PER APPLICATION
     Route: 065
     Dates: start: 20161206
  12. PREDNISOLONE. [Concomitant]
     Active Substance: PREDNISOLONE
     Dosage: 20 MG, (TAPERING DOWN)
     Route: 065
     Dates: start: 201612
  13. ENOXAPARIN [Concomitant]
     Active Substance: ENOXAPARIN
     Indication: ATRIAL FIBRILLATION
     Dosage: 0.8 ML, QD
     Route: 058
     Dates: start: 2016
  14. BISOPROLOL [Suspect]
     Active Substance: BISOPROLOL
     Indication: HYPERTENSION
     Dosage: 5 MG, QD
     Route: 048
  15. COSENTYX [Suspect]
     Active Substance: SECUKINUMAB
     Dosage: 300 MG, PER APPLICATION
     Route: 065
     Dates: start: 20170102
  16. DEKRISTOL [Concomitant]
     Active Substance: CHOLECALCIFEROL
     Indication: PRODUCT USED FOR UNKNOWN INDICATION
     Dosage: 20000 IU, BID
     Route: 065
     Dates: start: 201612
  17. HYDROCHLOROTHIAZIDE. [Concomitant]
     Active Substance: HYDROCHLOROTHIAZIDE
     Indication: HYPERTENSION
     Dosage: 12.5 MILLIGRAM, ONCE A DAY
     Route: 048

REACTIONS (25)
  - Psoriatic arthropathy [Unknown]
  - Fungal infection [Unknown]
  - Wheezing [Unknown]
  - Mechanical urticaria [Recovering/Resolving]
  - Drug intolerance [Recovered/Resolved]
  - Skin exfoliation [Recovering/Resolving]
  - Perivascular dermatitis [Recovering/Resolving]
  - Varicose vein [Unknown]
  - Epilepsy [Unknown]
  - Erythema [Recovered/Resolved]
  - Eczema [Recovering/Resolving]
  - General physical health deterioration [Recovering/Resolving]
  - Hepatic steatosis [Unknown]
  - Onychoclasis [Recovering/Resolving]
  - Pruritus [Recovered/Resolved]
  - Ultrasound liver abnormal [Unknown]
  - Hepatic cirrhosis [Unknown]
  - Occult blood [Unknown]
  - Staphylococcal skin infection [Unknown]
  - Rales [Unknown]
  - Candida infection [Unknown]
  - Skin plaque [Recovering/Resolving]
  - Dry skin [Recovering/Resolving]
  - Nail dystrophy [Recovering/Resolving]
  - Musculoskeletal stiffness [Recovered/Resolved]

NARRATIVE: CASE EVENT DATE: 201612
